FAERS Safety Report 10503662 (Version 1)
Quarter: 2014Q4

REPORT INFORMATION
  Report Type: Spontaneous
  Country: GB (occurrence: None)
  Receive Date: 20141003
  Receipt Date: 20141003
  Transmission Date: 20150528
  Serious: Yes (Other)
  Sender: FDA-Public Use
  Company Number: NL01PV14.37365

PATIENT
  Age: 32 Year
  Sex: Male
  Weight: 79 kg

DRUGS (1)
  1. TAMSULOSIN [Suspect]
     Active Substance: TAMSULOSIN
     Indication: URINARY TRACT DISORDER
     Route: 048
     Dates: start: 201409, end: 20140913

REACTIONS (4)
  - Condition aggravated [None]
  - Muscle contracture [None]
  - Muscle spasms [None]
  - Myoglobinuria [None]

NARRATIVE: CASE EVENT DATE: 201409
